FAERS Safety Report 17289344 (Version 1)
Quarter: 2020Q1

REPORT INFORMATION
  Report Type: Spontaneous
  Country: US (occurrence: US)
  Receive Date: 20200120
  Receipt Date: 20200120
  Transmission Date: 20200409
  Serious: Yes (Other)
  Sender: FDA-Public Use
  Company Number: US-COOPERSURGICAL, INC.-US-2019CPS003860

PATIENT
  Age: 19 Year
  Sex: Female
  Weight: 67.12 kg

DRUGS (2)
  1. PARAGARD T 380A [Suspect]
     Active Substance: COPPER
     Dosage: UNK
     Route: 015
     Dates: start: 20191211
  2. PARAGARD T 380A [Suspect]
     Active Substance: COPPER
     Indication: CONTRACEPTION
     Dosage: UNK
     Route: 015
     Dates: start: 20191127, end: 20191127

REACTIONS (5)
  - Complication of device insertion [Recovered/Resolved]
  - Off label use [Recovered/Resolved]
  - Procedural pain [Recovered/Resolved]
  - Uterine cervical laceration [Unknown]
  - Abdominal pain [Unknown]

NARRATIVE: CASE EVENT DATE: 20191127
